FAERS Safety Report 8664736 (Version 2)
Quarter: 2012Q4

REPORT INFORMATION
  Report Type: 
  Country: GR (occurrence: GR)
  Receive Date: 20120713
  Receipt Date: 20121214
  Transmission Date: 20130627
  Serious: Yes (Other)
  Sender: FDA-Public Use
  Company Number: GR-ABBOTT-12P-066-0954341-00

PATIENT
  Age: 48 Year
  Sex: Male

DRUGS (3)
  1. HUMIRA 40 MG/ 0.8 ML PRE-FILLED SYRINGE [Suspect]
     Indication: PSORIASIS
  2. NEORAL [Concomitant]
     Indication: PSORIASIS
  3. NEOTIGASON [Concomitant]
     Indication: PSORIASIS
     Route: 048

REACTIONS (2)
  - Cough [Unknown]
  - Lung neoplasm malignant [Unknown]
